FAERS Safety Report 7070265-9 (Version None)
Quarter: 2010Q4

REPORT INFORMATION
  Report Type: 
  Country: None (occurrence: None)
  Receive Date: 20101028
  Receipt Date: 20101013
  Transmission Date: 20110411
  Serious: No
  Sender: FDA-Public Use
  Company Number: US-WYE-H18218010

PATIENT
  Sex: Female
  Weight: 61.29 kg

DRUGS (4)
  1. VENLAFAXINE HYDROCHLORIDE [Suspect]
     Indication: DEPRESSION
     Route: 048
     Dates: start: 20100101
  2. LORAZEPAM [Concomitant]
  3. CHANTIX [Interacting]
     Indication: SMOKING CESSATION THERAPY
     Route: 048
     Dates: start: 20080901, end: 20100921
  4. ZOLOFT [Concomitant]

REACTIONS (8)
  - AGITATION [None]
  - CONSTIPATION [None]
  - DEPRESSION [None]
  - DRUG INTERACTION [None]
  - FEELING ABNORMAL [None]
  - MOOD ALTERED [None]
  - NAUSEA [None]
  - PANIC ATTACK [None]
